FAERS Safety Report 13057864 (Version 2)
Quarter: 2017Q3

REPORT INFORMATION
  Report Type: Spontaneous
  Country: US (occurrence: US)
  Receive Date: 20161223
  Receipt Date: 20170920
  Transmission Date: 20171127
  Serious: Yes (Hospitalization, Other)
  Sender: FDA-Public Use
  Company Number: US-WEST-WARD PHARMACEUTICALS CORP.-US-H14001-16-02967

PATIENT
  Age: 74 Year
  Sex: Female
  Weight: 54.71 kg

DRUGS (8)
  1. METHADONE HCL [Suspect]
     Active Substance: METHADONE HYDROCHLORIDE
     Route: 048
     Dates: start: 2014
  2. METHADONE [Suspect]
     Active Substance: METHADONE HYDROCHLORIDE
     Indication: GROIN PAIN
     Route: 048
     Dates: end: 2014
  3. VITAMINE D [Concomitant]
     Indication: PRODUCT USED FOR UNKNOWN INDICATION
     Route: 065
  4. METHADONE HCL [Suspect]
     Active Substance: METHADONE HYDROCHLORIDE
     Indication: GROIN PAIN
     Route: 048
     Dates: start: 2014
  5. LOPRESSOR [Suspect]
     Active Substance: METOPROLOL TARTRATE
     Indication: HYPERTENSION
     Route: 065
     Dates: start: 2012, end: 201309
  6. RITALIN LA [Concomitant]
     Active Substance: METHYLPHENIDATE HYDROCHLORIDE
     Indication: CHRONIC FATIGUE SYNDROME
     Route: 065
  7. METHADONE [Suspect]
     Active Substance: METHADONE HYDROCHLORIDE
     Indication: GROIN PAIN
     Route: 065
     Dates: start: 2009
  8. SYNTHROID [Concomitant]
     Active Substance: LEVOTHYROXINE SODIUM
     Indication: PRODUCT USED FOR UNKNOWN INDICATION
     Route: 065

REACTIONS (17)
  - Presyncope [Unknown]
  - Constipation [Unknown]
  - Bronchopulmonary aspergillosis allergic [Not Recovered/Not Resolved]
  - Hypertension [Unknown]
  - Fatigue [Unknown]
  - Headache [Unknown]
  - Seizure [Unknown]
  - Confusional state [Unknown]
  - Kyphosis [Recovering/Resolving]
  - Insomnia [Unknown]
  - Oesophageal candidiasis [Not Recovered/Not Resolved]
  - Diplopia [Unknown]
  - Nausea [Unknown]
  - Retching [Unknown]
  - Dizziness [Unknown]
  - Dehydration [Unknown]
  - Drug ineffective [Not Recovered/Not Resolved]

NARRATIVE: CASE EVENT DATE: 201504
